FAERS Safety Report 7725600-2 (Version None)
Quarter: 2011Q3

REPORT INFORMATION
  Report Type: 
  Country: None (occurrence: None)
  Receive Date: 20110830
  Receipt Date: 20110818
  Transmission Date: 20111222
  Serious: Yes (Hospitalization)
  Sender: FDA-Public Use
  Company Number: 2011CP000141

PATIENT
  Age: 52 Year
  Sex: Female

DRUGS (10)
  1. ACETAMINOPHEN [Suspect]
     Dosage: 3 DOSES/1 DAY;IV
     Route: 042
     Dates: start: 20110520, end: 20110526
  2. ACETAMINOPHEN [Suspect]
     Indication: KNEE ARTHROPLASTY
     Dates: start: 20110502, end: 20110520
  3. ESOMEPRAZOLE (ESOMEPRAZOLE) [Suspect]
     Dosage: 40 MG;1 DAY
     Dates: start: 20110520, end: 20110522
  4. INNOHEP [Suspect]
     Dates: start: 20110502
  5. RABEPRAZOLE SODIUM [Suspect]
     Indication: KNEE ARTHROPLASTY
     Dosage: PO
     Route: 048
     Dates: start: 20110502, end: 20110520
  6. FERROUS SULFATE TAB [Concomitant]
  7. SPECIAFOLDINE [Concomitant]
  8. MYOLASTAN [Concomitant]
  9. TRAMADOL HCL [Suspect]
     Dosage: 50 MG;1 DAY
     Dates: start: 20110520, end: 20110524
  10. KETOPROFEN [Concomitant]

REACTIONS (2)
  - THROMBOCYTOPENIA [None]
  - ANAEMIA [None]
